FAERS Safety Report 16287364 (Version 1)
Quarter: 2019Q2

REPORT INFORMATION
  Report Type: Spontaneous
  Country: IN (occurrence: IN)
  Receive Date: 20190508
  Receipt Date: 20190508
  Transmission Date: 20190711
  Serious: Yes (Death, Life-Threatening, Hospitalization)
  Sender: FDA-Public Use
  Company Number: IN-MYLANLABS-2019M1043291

PATIENT
  Age: 28 Year
  Sex: Male

DRUGS (3)
  1. PREDNISOLONE. [Suspect]
     Active Substance: PREDNISOLONE
     Indication: IMMUNOSUPPRESSANT DRUG THERAPY
     Route: 065
  2. TACROLIMUS. [Suspect]
     Active Substance: TACROLIMUS
     Indication: IMMUNOSUPPRESSANT DRUG THERAPY
     Route: 065
  3. MYCOPHENOLATE MOFETIL. [Suspect]
     Active Substance: MYCOPHENOLATE MOFETIL
     Indication: IMMUNOSUPPRESSANT DRUG THERAPY
     Route: 065

REACTIONS (11)
  - Human polyomavirus infection [Fatal]
  - Lower gastrointestinal haemorrhage [Fatal]
  - Shock [Fatal]
  - Transplant dysfunction [Fatal]
  - Wound infection [Fatal]
  - Intestinal tuberculosis [Fatal]
  - Sepsis [Fatal]
  - Acinetobacter infection [Fatal]
  - Pleural effusion [Unknown]
  - Hypochromic anaemia [Unknown]
  - Anuria [Unknown]
